FAERS Safety Report 9920305 (Version 5)
Quarter: 2014Q2

REPORT INFORMATION
  Report Type: Spontaneous
  Country: IT (occurrence: IT)
  Receive Date: 20140224
  Receipt Date: 20140505
  Transmission Date: 20141212
  Serious: Yes (Other)
  Sender: FDA-Public Use
  Company Number: IT-ACTAVIS-2014-02938

PATIENT
  Age: 58 Year
  Sex: Female
  Weight: 83 kg

DRUGS (4)
  1. PACLITAXEL (UNKNOWN) [Suspect]
     Indication: BREAST CANCER
     Dosage: 140 MG, 1/WEEK
     Route: 042
     Dates: start: 20120913, end: 20121207
  2. HERCEPTIN [Suspect]
     Indication: BREAST CANCER
     Dosage: 480 MG, CYCLICAL
     Route: 042
     Dates: start: 20120913, end: 20130816
  3. EUTIROX [Concomitant]
     Indication: PRODUCT USED FOR UNKNOWN INDICATION
     Dosage: UNK
     Route: 048
  4. LETROZOLE [Concomitant]
     Indication: BREAST CANCER
     Dosage: 2.5 MG, UNK
     Route: 048
     Dates: start: 20120817

REACTIONS (3)
  - Arthritis [Recovering/Resolving]
  - Interstitial lung disease [Recovered/Resolved]
  - Pyrexia [Recovered/Resolved]
